FAERS Safety Report 18917023 (Version 2)
Quarter: 2021Q1

REPORT INFORMATION
  Report Type: Report from Study
  Country: IL (occurrence: IL)
  Receive Date: 20210219
  Receipt Date: 20210319
  Transmission Date: 20210420
  Serious: Yes (Hospitalization, Other)
  Sender: FDA-Public Use
  Company Number: IL-SHIRE-IL201850477AA

PATIENT
  Age: 72 Year
  Sex: Male

DRUGS (28)
  1. REPAGLINIDE. [Concomitant]
     Active Substance: REPAGLINIDE
     Indication: PRODUCT USED FOR UNKNOWN INDICATION
     Dosage: UNK
  2. SERETIDE [Concomitant]
     Active Substance: FLUTICASONE PROPIONATE\SALMETEROL XINAFOATE
     Indication: PRODUCT USED FOR UNKNOWN INDICATION
     Dosage: UNK
  3. SOLVEX [CARBOCISTEINE] [Concomitant]
     Indication: PRODUCT USED FOR UNKNOWN INDICATION
  4. VELAGLUCERASE ALFA [Suspect]
     Active Substance: VELAGLUCERASE ALFA
     Dosage: 3 DOSAGE FORM (TOTAL OF 6 VIALS PER MONTH), 1X/2WKS (EVERY TWO WEEKS)
     Route: 042
     Dates: start: 20091215
  5. VELAGLUCERASE ALFA [Suspect]
     Active Substance: VELAGLUCERASE ALFA
     Dosage: 3 DOSAGE FORM (TOTAL OF 6 VIALS PER MONTH), 1X/2WKS (EVERY TWO WEEKS)
     Route: 042
     Dates: start: 20091215
  6. EBIXA [Concomitant]
     Active Substance: MEMANTINE HYDROCHLORIDE
     Indication: PRODUCT USED FOR UNKNOWN INDICATION
  7. MONOCORD [Concomitant]
     Active Substance: ISOSORBIDE MONONITRATE
     Indication: PRODUCT USED FOR UNKNOWN INDICATION
  8. VELAGLUCERASE ALFA [Suspect]
     Active Substance: VELAGLUCERASE ALFA
     Indication: GAUCHER^S DISEASE
     Dosage: 3 DOSAGE FORM (TOTAL OF 6 VIALS PER MONTH), 1X/2WKS (EVERY TWO WEEKS)
     Route: 042
     Dates: start: 20091215
  9. VELAGLUCERASE ALFA [Suspect]
     Active Substance: VELAGLUCERASE ALFA
     Dosage: 3 DOSAGE FORM (3 VIALS EVERY TWO WEEKS, TOAL OF 6 VIALS PER MONTH), 1X/2WKS
     Route: 042
     Dates: start: 20091215
  10. VELAGLUCERASE ALFA [Suspect]
     Active Substance: VELAGLUCERASE ALFA
     Dosage: 3 DOSAGE FORM (3 VIALS EVERY TWO WEEKS, TOAL OF 6 VIALS PER MONTH), 1X/2WKS
     Route: 042
  11. EXELON PATCH [Concomitant]
     Active Substance: RIVASTIGMINE
     Indication: PRODUCT USED FOR UNKNOWN INDICATION
  12. VELAGLUCERASE ALFA [Suspect]
     Active Substance: VELAGLUCERASE ALFA
     Dosage: 3 DOSAGE FORM (TOTAL OF 6 VIALS PER MONTH), 1X/2WKS (EVERY TWO WEEKS)
     Route: 042
     Dates: start: 20091215
  13. SIMVASTATIN. [Concomitant]
     Active Substance: SIMVASTATIN
     Indication: PRODUCT USED FOR UNKNOWN INDICATION
  14. VELAGLUCERASE ALFA [Suspect]
     Active Substance: VELAGLUCERASE ALFA
     Dosage: 3 DOSAGE FORM (TOTAL OF 6 VIALS PER MONTH), 1X/2WKS (EVERY TWO WEEKS)
     Route: 042
     Dates: start: 20091215
  15. BONDORMIN [Concomitant]
     Active Substance: BROTIZOLAM
     Indication: PRODUCT USED FOR UNKNOWN INDICATION
  16. PLAVIX [Concomitant]
     Active Substance: CLOPIDOGREL BISULFATE
     Indication: PRODUCT USED FOR UNKNOWN INDICATION
     Dosage: 75 MILLIGRAM, 1X/DAY:QD
     Route: 048
  17. CARDILOC [Concomitant]
     Active Substance: BISOPROLOL FUMARATE
     Indication: PRODUCT USED FOR UNKNOWN INDICATION
     Dosage: 5 MILLIGRAM, 2X/DAY:BID
     Route: 048
  18. FOLIC ACID. [Concomitant]
     Active Substance: FOLIC ACID
     Indication: PRODUCT USED FOR UNKNOWN INDICATION
     Dosage: 5 MILLIGRAM, 1X/DAY:QD
     Route: 048
  19. VELAGLUCERASE ALFA [Suspect]
     Active Substance: VELAGLUCERASE ALFA
     Dosage: 3 DOSAGE FORM (TOTAL OF 6 VIALS PER MONTH), 1X/2WKS (EVERY TWO WEEKS)
     Route: 042
     Dates: start: 20091215
  20. VELAGLUCERASE ALFA [Suspect]
     Active Substance: VELAGLUCERASE ALFA
     Dosage: 3 DOSAGE FORM (TOTAL OF 6 VIALS PER MONTH), 1X/2WKS (EVERY TWO WEEKS)
     Route: 042
     Dates: start: 20091215
  21. SLOW K [Concomitant]
     Active Substance: POTASSIUM CHLORIDE
     Indication: PRODUCT USED FOR UNKNOWN INDICATION
  22. VELAGLUCERASE ALFA [Suspect]
     Active Substance: VELAGLUCERASE ALFA
     Dosage: 3 DOSAGE FORM (TOTAL OF 6 VIALS PER MONTH), 1X/2WKS (EVERY TWO WEEKS)
     Route: 042
     Dates: start: 20091215
  23. VELAGLUCERASE ALFA [Suspect]
     Active Substance: VELAGLUCERASE ALFA
     Dosage: 3 DOSAGE FORM (TOTAL OF 6 VIALS PER MONTH), 1X/2WKS (EVERY TWO WEEKS)
     Route: 042
     Dates: start: 20091215
  24. VELAGLUCERASE ALFA [Suspect]
     Active Substance: VELAGLUCERASE ALFA
     Dosage: 3 DOSAGE FORM (3 VIALS EVERY TWO WEEKS, TOAL OF 6 VIALS PER MONTH), 1X/2WKS
     Route: 042
     Dates: start: 20091215
  25. CEREZYME [Concomitant]
     Active Substance: IMIGLUCERASE
     Indication: PRODUCT USED FOR UNKNOWN INDICATION
  26. PREDNISONE. [Concomitant]
     Active Substance: PREDNISONE
     Indication: PRODUCT USED FOR UNKNOWN INDICATION
     Dosage: UNK
  27. AEROVENT [BUDESONIDE] [Concomitant]
     Indication: PRODUCT USED FOR UNKNOWN INDICATION
  28. POLYDINE [AMMONIUM CHLORIDE;BROMPHENIRAMINE MALEATE;DEXTROMETHORPHAN H [Concomitant]
     Indication: PRODUCT USED FOR UNKNOWN INDICATION

REACTIONS (25)
  - Cognitive disorder [Unknown]
  - Vasospasm [Unknown]
  - Asthenia [Not Recovered/Not Resolved]
  - Cardiac failure congestive [Unknown]
  - Suspected COVID-19 [Not Recovered/Not Resolved]
  - Sleep-related eating disorder [Unknown]
  - Malaise [Not Recovered/Not Resolved]
  - Cough [Recovering/Resolving]
  - Localised infection [Not Recovered/Not Resolved]
  - Chronic obstructive pulmonary disease [Recovering/Resolving]
  - Gait disturbance [Unknown]
  - Pyrexia [Not Recovered/Not Resolved]
  - Dyspnoea [Unknown]
  - Bacterial sepsis [Unknown]
  - Renal failure [Recovering/Resolving]
  - Blood pressure decreased [Recovering/Resolving]
  - Sputum discoloured [Unknown]
  - Hypersomnia [Unknown]
  - Loss of consciousness [Recovering/Resolving]
  - Neuropathy peripheral [Unknown]
  - Necrosis [Unknown]
  - Pneumonia [Recovered/Resolved]
  - Bronchial obstruction [Unknown]
  - Hepatic enzyme abnormal [Recovering/Resolving]
  - Upper respiratory tract infection [Not Recovered/Not Resolved]

NARRATIVE: CASE EVENT DATE: 201901
